FAERS Safety Report 10265900 (Version 1)
Quarter: 2014Q2

REPORT INFORMATION
  Report Type: Spontaneous
  Country: CH (occurrence: CH)
  Receive Date: 20140627
  Receipt Date: 20140627
  Transmission Date: 20141212
  Serious: Yes (Other)
  Sender: FDA-Public Use
  Company Number: CH-ASTRAZENECA-2014SE45606

PATIENT
  Age: 12 Year
  Sex: Female

DRUGS (8)
  1. SEROQUEL [Suspect]
     Indication: EMOTIONAL DISORDER OF CHILDHOOD
     Route: 048
     Dates: start: 20140107
  2. SEROQUEL [Suspect]
     Indication: AGGRESSION
     Route: 048
     Dates: start: 20140107
  3. SEROQUEL [Suspect]
     Indication: SUICIDAL IDEATION
     Route: 048
     Dates: start: 20140107
  4. SEROQUEL [Suspect]
     Indication: AGGRESSION
     Route: 048
     Dates: start: 20140107
  5. SEROQUEL [Suspect]
     Indication: EMOTIONAL DISORDER OF CHILDHOOD
     Route: 048
     Dates: start: 20140424, end: 20140430
  6. SEROQUEL [Suspect]
     Indication: AGGRESSION
     Route: 048
     Dates: start: 20140424, end: 20140430
  7. SEROQUEL [Suspect]
     Indication: SUICIDAL IDEATION
     Route: 048
     Dates: start: 20140424, end: 20140430
  8. SEROQUEL [Suspect]
     Indication: AGGRESSION
     Route: 048
     Dates: start: 20140424, end: 20140430

REACTIONS (3)
  - Epistaxis [Recovered/Resolved]
  - Normochromic normocytic anaemia [Recovered/Resolved]
  - Platelet count decreased [Recovered/Resolved]
